FAERS Safety Report 19805015 (Version 4)
Quarter: 2021Q4

REPORT INFORMATION
  Report Type: Spontaneous
  Country: DE (occurrence: DE)
  Receive Date: 20210908
  Receipt Date: 20211208
  Transmission Date: 20220303
  Serious: No
  Sender: FDA-Public Use
  Company Number: DE-UCBSA-2021042856

PATIENT
  Sex: Male

DRUGS (2)
  1. NEUPRO [Suspect]
     Active Substance: ROTIGOTINE
     Indication: Restless legs syndrome
     Dosage: 3MG UNK
  2. NEUPRO [Suspect]
     Active Substance: ROTIGOTINE
     Dosage: 3MG UNK

REACTIONS (3)
  - Condition aggravated [Unknown]
  - Device adhesion issue [Unknown]
  - Skin irritation [Unknown]
